FAERS Safety Report 9631505 (Version 1)
Quarter: 2013Q4

REPORT INFORMATION
  Report Type: Spontaneous
  Country: GB (occurrence: None)
  Receive Date: 20131016
  Receipt Date: 20131016
  Transmission Date: 20140711
  Serious: Yes (Other)
  Sender: FDA-Public Use
  Company Number: FK201304557

PATIENT
  Sex: 0

DRUGS (1)
  1. METHOTREXATE (MANUFACTURER UNKNOWN) (METHOTREXATE) (METHOTREXATE) [Suspect]
     Indication: MULTIPLE SCLEROSIS
     Route: 058
     Dates: start: 201204

REACTIONS (1)
  - Myocardial infarction [None]
